FAERS Safety Report 21245811 (Version 1)
Quarter: 2022Q3

REPORT INFORMATION
  Report Type: Spontaneous
  Country: NL (occurrence: NL)
  Receive Date: 20220824
  Receipt Date: 20220824
  Transmission Date: 20221027
  Serious: Yes (Hospitalization)
  Sender: FDA-Public Use
  Company Number: NL-SA-2022SA285262

PATIENT
  Age: 68 Year
  Sex: Male
  Weight: 84 kg

DRUGS (3)
  1. DOCETAXEL [Suspect]
     Active Substance: DOCETAXEL
     Indication: Neoplasm
     Dosage: 75 MG, Q3W
     Route: 058
  2. MIRZOTAMAB CLEZUTOCLAX [Suspect]
     Active Substance: MIRZOTAMAB CLEZUTOCLAX
     Indication: Neoplasm
     Dosage: 1 DF, QOW
     Route: 058
  3. MIRZOTAMAB CLEZUTOCLAX [Suspect]
     Active Substance: MIRZOTAMAB CLEZUTOCLAX
     Dosage: 75 MG/M2, Q3W
     Route: 042
     Dates: start: 20220629

REACTIONS (7)
  - Neutrophil count decreased [Not Recovered/Not Resolved]
  - Diarrhoea [Unknown]
  - Abdominal pain [Unknown]
  - Oral pain [Unknown]
  - Hypophagia [Unknown]
  - Gastrointestinal inflammation [Recovered/Resolved]
  - Mucosal inflammation [Recovered/Resolved]

NARRATIVE: CASE EVENT DATE: 20220705
